FAERS Safety Report 19895176 (Version 1)
Quarter: 2021Q3

REPORT INFORMATION
  Report Type: Spontaneous
  Country: US (occurrence: US)
  Receive Date: 20210929
  Receipt Date: 20210929
  Transmission Date: 20211014
  Serious: No
  Sender: FDA-Public Use
  Company Number: None

PATIENT
  Age: 74 Year
  Sex: Male
  Weight: 73.3 kg

DRUGS (1)
  1. LISINOPRIL (LISINOPRIL 10MG TAB) [Suspect]
     Active Substance: LISINOPRIL
     Indication: ANGIOEDEMA
     Dates: start: 20171012, end: 20180107

REACTIONS (2)
  - Angioedema [None]
  - Peripheral swelling [None]

NARRATIVE: CASE EVENT DATE: 20180106
